FAERS Safety Report 19053973 (Version 1)
Quarter: 2021Q1

REPORT INFORMATION
  Report Type: Spontaneous
  Country: US (occurrence: US)
  Receive Date: 20210324
  Receipt Date: 20210324
  Transmission Date: 20210420
  Serious: No
  Sender: FDA-Public Use
  Company Number: US-009507513-2103USA006214

PATIENT
  Sex: Female

DRUGS (1)
  1. PREVYMIS [Suspect]
     Active Substance: LETERMOVIR
     Dosage: 480 MILLIGRAMS, ONE TABLET
     Route: 048
     Dates: start: 202103

REACTIONS (6)
  - Product quality issue [Unknown]
  - Product packaging quantity issue [Unknown]
  - No adverse event [Unknown]
  - Product blister packaging issue [Unknown]
  - Product dose omission issue [Unknown]
  - Product administration error [Unknown]

NARRATIVE: CASE EVENT DATE: 202103
